FAERS Safety Report 9490766 (Version 3)
Quarter: 2013Q4

REPORT INFORMATION
  Report Type: Report from Study
  Country: US (occurrence: US)
  Receive Date: 20130830
  Receipt Date: 20131224
  Transmission Date: 20140711
  Serious: Yes (Hospitalization)
  Sender: FDA-Public Use
  Company Number: US-ROCHE-1268409

PATIENT
  Age: 69 Year
  Sex: Female
  Weight: 64 kg

DRUGS (4)
  1. BEVACIZUMAB [Suspect]
     Indication: OVARIAN CANCER
     Dosage: OVER 30-90MINS, LAST DOSE ON 22/JUL/2013 (961 MG)
     Route: 042
     Dates: start: 20130701
  2. CARBOPLATIN [Suspect]
     Indication: OVARIAN CANCER
     Dosage: AUC=6 ON DAY 1 OF CYCLE 1-6, LAST DOSE ON 22/JUL/2013 (447 MG)
     Route: 042
     Dates: start: 20130701
  3. PACLITAXEL [Suspect]
     Indication: OVARIAN CANCER
     Dosage: OVER 3 HRS, LAST DOSE ON 22/JUL/2013 (312 MG)
     Route: 042
     Dates: start: 20130701
  4. ISOVUE-370 [Concomitant]
     Route: 065

REACTIONS (3)
  - Lung infection [Recovered/Resolved]
  - Hypoalbuminaemia [Recovered/Resolved]
  - Neutrophil count decreased [Recovered/Resolved]
